FAERS Safety Report 9061236 (Version 1)
Quarter: 2013Q1

REPORT INFORMATION
  Report Type: Spontaneous
  Country: US (occurrence: None)
  Receive Date: 20130118
  Receipt Date: 20130118
  Transmission Date: 20140127
  Serious: Yes (Death)
  Sender: FDA-Public Use
  Company Number: 2012MA000359

PATIENT
  Age: 50 Year
  Sex: Male

DRUGS (4)
  1. KADIAN [Suspect]
     Indication: COMPLETED SUICIDE
     Route: 048
  2. TRAMADOL HYDROCHLORIDE TABLETS [Suspect]
     Route: 048
  3. ETHANOL [Suspect]
     Route: 048
  4. HEROIN [Suspect]
     Route: 048

REACTIONS (1)
  - Completed suicide [None]
